FAERS Safety Report 15774532 (Version 1)
Quarter: 2018Q4

REPORT INFORMATION
  Report Type: Report from Study
  Country: JP (occurrence: JP)
  Receive Date: 20181229
  Receipt Date: 20181229
  Transmission Date: 20190205
  Serious: Yes (Hospitalization, Other)
  Sender: FDA-Public Use
  Company Number: JP-GLAXOSMITHKLINE-JP2018JPN215253

PATIENT
  Age: 5 Decade
  Sex: Male
  Weight: 66 kg

DRUGS (20)
  1. NEORAL [Suspect]
     Active Substance: CYCLOSPORINE
     Indication: SYSTEMIC LUPUS ERYTHEMATOSUS
     Dosage: 250 MG, 1D
     Route: 048
  2. PREDONINE [Suspect]
     Active Substance: PREDNISOLONE
     Dosage: 25 MG, 1D
     Route: 048
     Dates: start: 20180830, end: 20180910
  3. PREDONINE [Suspect]
     Active Substance: PREDNISOLONE
     Indication: SYSTEMIC LUPUS ERYTHEMATOSUS
     Dosage: 30 MG, 1D
     Route: 048
     Dates: end: 20180829
  4. BAKTAR [Concomitant]
     Active Substance: SULFAMETHOXAZOLE\TRIMETHOPRIM
     Dosage: UNK
  5. CANDESARTAN. [Concomitant]
     Active Substance: CANDESARTAN
     Dosage: UNK
  6. METHYCOBAL [Concomitant]
     Active Substance: METHYLCOBALAMIN
     Dosage: UNK
  7. BELIMUMAB [Suspect]
     Active Substance: BELIMUMAB
     Dosage: 640 MG, 1D
     Route: 041
     Dates: start: 20180927, end: 20180927
  8. AMLODIPINE BESILATE [Concomitant]
     Active Substance: AMLODIPINE BESYLATE
     Dosage: UNK
  9. FEBURIC [Concomitant]
     Active Substance: FEBUXOSTAT
     Dosage: UNK
  10. PREDONINE [Suspect]
     Active Substance: PREDNISOLONE
     Dosage: 15 MG, 1D
     Route: 048
     Dates: start: 20180927, end: 20181024
  11. LOXOPROFEN [Concomitant]
     Active Substance: LOXOPROFEN
     Dosage: UNK
  12. BELIMUMAB [Suspect]
     Active Substance: BELIMUMAB
     Dosage: 640 MG, 1D
     Route: 041
     Dates: start: 20181025, end: 20181025
  13. NEORAL [Suspect]
     Active Substance: CYCLOSPORINE
     Dosage: 200 MG, 1D
     Route: 048
     Dates: start: 20181121
  14. PREDONINE [Suspect]
     Active Substance: PREDNISOLONE
     Dosage: 20 MG, 1D
     Route: 048
     Dates: start: 20180911, end: 20180926
  15. PREDONINE [Suspect]
     Active Substance: PREDNISOLONE
     Dosage: 12.5 MG, 1D
     Route: 048
     Dates: start: 20181025, end: 20181217
  16. BREDININ [Suspect]
     Active Substance: MIZORIBINE
     Indication: SYSTEMIC LUPUS ERYTHEMATOSUS
     Dosage: 100 MG, UNK
     Route: 048
  17. EDIROL [Concomitant]
     Active Substance: ELDECALCITOL
     Dosage: UNK
  18. BELIMUMAB [Suspect]
     Active Substance: BELIMUMAB
     Indication: SYSTEMIC LUPUS ERYTHEMATOSUS
     Dosage: 640 MG, 1D
     Route: 041
     Dates: start: 20180830, end: 20180830
  19. PREDONINE [Suspect]
     Active Substance: PREDNISOLONE
     Dosage: 10 MG, 1D
     Route: 048
     Dates: start: 20181218
  20. PARIET [Concomitant]
     Active Substance: RABEPRAZOLE SODIUM
     Dosage: UNK

REACTIONS (6)
  - Corynebacterium sepsis [Recovering/Resolving]
  - Sepsis [Recovering/Resolving]
  - Herpes zoster [Recovered/Resolved]
  - Endocarditis [Recovering/Resolving]
  - Cardiac valve abscess [Recovering/Resolving]
  - Systemic lupus erythematosus [Unknown]

NARRATIVE: CASE EVENT DATE: 20181113
